FAERS Safety Report 10885996 (Version 2)
Quarter: 2015Q3

REPORT INFORMATION
  Report Type: Spontaneous
  Country: JP (occurrence: None)
  Receive Date: 20150302
  Receipt Date: 20150706
  Transmission Date: 20151125
  Serious: Yes (Other)
  Sender: FDA-Public Use
  Company Number: ABR_02084_2015

PATIENT
  Age: 70 Year
  Sex: Male

DRUGS (1)
  1. GLIADEL [Suspect]
     Active Substance: CARMUSTINE
     Indication: MALIGNANT GLIOMA
     Dosage: (INTRACEREBRAL)
     Dates: start: 20140604

REACTIONS (3)
  - Paralysis [None]
  - Cerebral infarction [None]
  - Aphasia [None]

NARRATIVE: CASE EVENT DATE: 20140604
